FAERS Safety Report 7757130-6 (Version None)
Quarter: 2011Q3

REPORT INFORMATION
  Report Type: 
  Country: None (occurrence: None)
  Receive Date: 20110916
  Receipt Date: 20110906
  Transmission Date: 20111222
  Serious: Yes (Other)
  Sender: FDA-Public Use
  Company Number: US-ABBOTT-10P-163-0688449-00

PATIENT
  Sex: Male

DRUGS (11)
  1. FOLIC ACID [Concomitant]
     Indication: VITAMIN SUPPLEMENTATION
     Dates: start: 20100113
  2. KEPPRA [Concomitant]
     Dates: start: 20101117
  3. HUMIRA [Suspect]
     Indication: JUVENILE ARTHRITIS
     Route: 058
     Dates: start: 20100611
  4. ZOFRAN [Concomitant]
     Indication: NAUSEA
     Dates: start: 20100114
  5. CLARITIN [Concomitant]
     Indication: HYPERSENSITIVITY
  6. KEPPRA [Concomitant]
     Dates: start: 20101117
  7. NAPROSYN [Concomitant]
     Indication: JUVENILE ARTHRITIS
     Dates: start: 20091202
  8. METHOTREXATE [Concomitant]
     Indication: JUVENILE ARTHRITIS
     Dates: start: 20100114, end: 20100604
  9. ALBUTEROL [Concomitant]
     Indication: ASTHMA
  10. FLONASE [Concomitant]
     Indication: ASTHMA
     Route: 045
     Dates: start: 20100210
  11. KEPPRA [Concomitant]
     Indication: EPILEPSY
     Dosage: PM DOSE
     Dates: end: 20101116

REACTIONS (1)
  - CONVULSION [None]
